FAERS Safety Report 4381858-1 (Version None)
Quarter: 2004Q2

REPORT INFORMATION
  Report Type: 
  Country: None (occurrence: None)
  Receive Date: 20040618
  Receipt Date: 20040517
  Transmission Date: 20050107
  Serious: Yes (Death)
  Sender: FDA-Public Use
  Company Number: 2168

PATIENT
  Age: 51 Year
  Sex: Male

DRUGS (1)
  1. FLURAZEPAM [Suspect]
     Indication: INTENTIONAL MISUSE

REACTIONS (2)
  - COMPLETED SUICIDE [None]
  - GUN SHOT WOUND [None]
